FAERS Safety Report 20865432 (Version 1)
Quarter: 2022Q2

REPORT INFORMATION
  Report Type: Spontaneous
  Country: GB (occurrence: GB)
  Receive Date: 20220524
  Receipt Date: 20220524
  Transmission Date: 20220721
  Serious: Yes (Other)
  Sender: FDA-Public Use
  Company Number: GB-SA-SAC20220111000971

PATIENT
  Age: 14 Year
  Sex: Female

DRUGS (1)
  1. SARILUMAB [Suspect]
     Active Substance: SARILUMAB
     Indication: Juvenile idiopathic arthritis
     Dosage: UNK

REACTIONS (4)
  - Juvenile idiopathic arthritis [Unknown]
  - Headache [Unknown]
  - Injection site reaction [Unknown]
  - Product use in unapproved indication [Unknown]
